FAERS Safety Report 5038815-1 (Version None)
Quarter: 2006Q2

REPORT INFORMATION
  Report Type: 
  Country: None (occurrence: None)
  Receive Date: 20060629
  Receipt Date: 20060608
  Transmission Date: 20061013
  Serious: Yes (Hospitalization, Other)
  Sender: FDA-Public Use
  Company Number: JP-ABBOTT-06P-087-0335514-00

PATIENT
  Sex: Male

DRUGS (10)
  1. SEVOFLURANE [Suspect]
     Indication: INDUCTION OF ANAESTHESIA
     Route: 055
     Dates: start: 20060530, end: 20060530
  2. SEVOFLURANE [Suspect]
     Indication: GENERAL ANAESTHESIA
  3. MIDAZOLAM [Suspect]
     Indication: PREMEDICATION
     Route: 054
     Dates: start: 20060530, end: 20060530
  4. ATROPINE SULFATE [Suspect]
     Indication: PREMEDICATION
     Route: 042
     Dates: start: 20060530, end: 20060530
  5. ATROPINE SULFATE [Suspect]
     Indication: NEUROMUSCULAR BLOCKADE REVERSAL
     Route: 042
     Dates: start: 20060530, end: 20060530
  6. EPINEPHRINE [Suspect]
     Indication: DRUG USE FOR UNKNOWN INDICATION
     Route: 065
  7. NEOSTIGMINE METILSULFATE [Suspect]
     Indication: NEUROMUSCULAR BLOCKADE REVERSAL
     Route: 042
     Dates: start: 20060530, end: 20060530
  8. NITROUS OXIDE W/ OXYGEN [Suspect]
     Indication: INDUCTION OF ANAESTHESIA
     Route: 055
     Dates: start: 20060530, end: 20060530
  9. VECURONIUM BROMIDE [Suspect]
     Indication: MUSCLE RELAXANT THERAPY
     Route: 042
     Dates: start: 20060530, end: 20060530
  10. VECURONIUM BROMIDE [Suspect]
     Indication: INDUCTION OF ANAESTHESIA
     Route: 065
     Dates: start: 20060530, end: 20060530

REACTIONS (2)
  - HAEMATURIA [None]
  - PROTEINURIA [None]
